FAERS Safety Report 4470740-7 (Version None)
Quarter: 2004Q4

REPORT INFORMATION
  Report Type: 
  Country: None (occurrence: None)
  Receive Date: 20041006
  Receipt Date: 20041006
  Transmission Date: 20050328
  Serious: Yes (Hospitalization)
  Sender: FDA-Public Use
  Company Number: None

PATIENT
  Age: 56 Year
  Sex: Female
  Weight: 77.1115 kg

DRUGS (8)
  1. TOPOTECAN [Suspect]
     Indication: OVARIAN CANCER
     Dosage: SEE IMAGE
     Dates: start: 20040927
  2. TOPOTECAN [Suspect]
     Indication: OVARIAN CANCER
     Dosage: SEE IMAGE
     Dates: start: 20040928
  3. TOPOTECAN [Suspect]
     Indication: OVARIAN CANCER
     Dosage: SEE IMAGE
     Dates: start: 20040929
  4. CARBOPLATIN [Suspect]
     Indication: OVARIAN CANCER
     Dosage: 475 MG DAYS Q3WKS
     Dates: start: 20040929
  5. PREVACID [Concomitant]
  6. PRAVACHOL [Concomitant]
  7. FLEXERIL [Concomitant]
  8. CIPRO [Concomitant]

REACTIONS (4)
  - CHEST PAIN [None]
  - DYSPNOEA [None]
  - HAEMOGLOBIN DECREASED [None]
  - PYREXIA [None]
